FAERS Safety Report 6284342-3 (Version None)
Quarter: 2009Q3

REPORT INFORMATION
  Report Type: 
  Country: None (occurrence: None)
  Receive Date: 20090722
  Receipt Date: 20090715
  Transmission Date: 20100115
  Serious: Yes (Other)
  Sender: FDA-Public Use
  Company Number: 2009SP015755

PATIENT
  Age: 42 Year
  Sex: Female

DRUGS (2)
  1. NOXAFIL [Suspect]
     Indication: FUNGAL INFECTION
     Dates: start: 20090708
  2. VORICONAZOLE [Suspect]

REACTIONS (4)
  - ENCEPHALITIS [None]
  - ENCEPHALITIS VIRAL [None]
  - ENCEPHALOPATHY [None]
  - LIVER FUNCTION TEST ABNORMAL [None]
